FAERS Safety Report 23182601 (Version 3)
Quarter: 2023Q4

REPORT INFORMATION
  Report Type: Spontaneous
  Country: US (occurrence: US)
  Receive Date: 20231114
  Receipt Date: 20231227
  Transmission Date: 20240110
  Serious: Yes (Death, Hospitalization)
  Sender: FDA-Public Use
  Company Number: US-PFIZER INC-PV202300185500

PATIENT
  Age: 78 Year
  Sex: Male

DRUGS (1)
  1. SUTENT [Suspect]
     Active Substance: SUNITINIB MALATE
     Indication: Neoplasm malignant
     Dosage: UNK

REACTIONS (5)
  - Neoplasm progression [Fatal]
  - Hypoglycaemia [Fatal]
  - Sepsis [Fatal]
  - Acute respiratory failure [Fatal]
  - Liver disorder [Unknown]
